FAERS Safety Report 7406686-1 (Version None)
Quarter: 2011Q2

REPORT INFORMATION
  Report Type: 
  Country: None (occurrence: None)
  Receive Date: 20110411
  Receipt Date: 20110407
  Transmission Date: 20111010
  Serious: Yes (Hospitalization, Other)
  Sender: FDA-Public Use
  Company Number: US-PFIZER INC-2010148548

PATIENT
  Sex: Female
  Weight: 57 kg

DRUGS (7)
  1. KLONOPIN [Concomitant]
     Dosage: 2 MG, 2X/DAY
     Route: 048
  2. PRISTIQ [Concomitant]
     Dosage: 50 MG, DAILY
     Route: 048
  3. LYRICA [Concomitant]
     Dosage: 75 MG, 2X/DAY
     Route: 048
  4. NORFLEX [Concomitant]
     Dosage: 100 MG, 2X/DAY
     Route: 048
  5. GABAPENTIN [Suspect]
     Indication: NEURALGIA
     Dosage: 300 MG, DAILY
     Route: 048
     Dates: start: 20101109, end: 20101111
  6. DARVOCET-N 50 [Concomitant]
     Indication: PAIN
     Dosage: 100/650MG  EVERY 6HOURS AS NEEDED
     Route: 048
  7. MOBIC [Concomitant]
     Dosage: 7.5 MG, DAILY
     Route: 048

REACTIONS (8)
  - HEART RATE INCREASED [None]
  - DYSPNOEA [None]
  - PALPITATIONS [None]
  - HYPERHIDROSIS [None]
  - NAUSEA [None]
  - MYOCARDIAL INFARCTION [None]
  - HYPERTENSION [None]
  - CHEST DISCOMFORT [None]
